FAERS Safety Report 18969136 (Version 1)
Quarter: 2021Q1

REPORT INFORMATION
  Report Type: Spontaneous
  Country: DK (occurrence: DK)
  Receive Date: 20210304
  Receipt Date: 20210304
  Transmission Date: 20210420
  Serious: Yes (Death, Life-Threatening, Other)
  Sender: FDA-Public Use
  Company Number: DK-ACCORD-218384

PATIENT
  Age: 6 Year
  Sex: Male

DRUGS (3)
  1. VINCRISTINE [Suspect]
     Active Substance: VINCRISTINE
     Indication: GLIONEURONAL TUMOUR
  2. LOMUSTINE. [Suspect]
     Active Substance: LOMUSTINE
     Indication: GLIONEURONAL TUMOUR
  3. CISPLATIN. [Suspect]
     Active Substance: CISPLATIN
     Indication: GLIONEURONAL TUMOUR

REACTIONS (2)
  - Treatment failure [Fatal]
  - Off label use [Unknown]
